FAERS Safety Report 8813706 (Version 1)
Quarter: 2012Q4

REPORT INFORMATION
  Report Type: 
  Country: US (occurrence: US)
  Receive Date: 20120928
  Receipt Date: 20120928
  Transmission Date: 20130627
  Serious: Yes (Other)
  Sender: FDA-Public Use
  Company Number: US-ROCHE-1136393

PATIENT
  Age: 70 Year
  Sex: Female

DRUGS (2)
  1. VALIUM [Suspect]
     Indication: PANIC DISORDER
  2. VALIUM [Suspect]
     Indication: ANXIETY DISORDER

REACTIONS (2)
  - Drug ineffective [Unknown]
  - Coeliac disease [Unknown]
